FAERS Safety Report 4456989-8 (Version None)
Quarter: 2004Q3

REPORT INFORMATION
  Report Type: 
  Country: None (occurrence: None)
  Receive Date: 20040923
  Receipt Date: 20040706
  Transmission Date: 20050211
  Serious: Yes (Death, Hospitalization)
  Sender: FDA-Public Use
  Company Number: US-GLAXOSMITHKLINE-A0518052A

PATIENT
  Age: 46 Year
  Sex: Male

DRUGS (4)
  1. PAXIL [Suspect]
     Indication: PANIC DISORDER
     Dosage: 20MG PER DAY
     Route: 048
     Dates: start: 20010117
  2. VALIUM [Concomitant]
     Route: 048
  3. THIAMINE [Concomitant]
  4. MULTI-VITAMIN [Concomitant]

REACTIONS (12)
  - BRADYCARDIA [None]
  - BRAIN DEATH [None]
  - CARDIO-RESPIRATORY ARREST [None]
  - COMA [None]
  - COMPLETED SUICIDE [None]
  - DYSPNOEA [None]
  - GUN SHOT WOUND [None]
  - HAEMORRHAGE [None]
  - NERVOUS SYSTEM DISORDER [None]
  - REFUSAL OF TREATMENT BY RELATIVE [None]
  - SUICIDAL IDEATION [None]
  - TRAUMATIC BRAIN INJURY [None]
